FAERS Safety Report 13354367 (Version 1)
Quarter: 2017Q1

REPORT INFORMATION
  Report Type: Report from Study
  Country: PK (occurrence: PK)
  Receive Date: 20170321
  Receipt Date: 20170321
  Transmission Date: 20170429
  Serious: Yes (Other)
  Sender: FDA-Public Use
  Company Number: PHHY2017PK039710

PATIENT
  Age: 28 Year
  Sex: Female
  Weight: 58 kg

DRUGS (1)
  1. AFINITOR [Suspect]
     Active Substance: EVEROLIMUS
     Indication: RENAL CELL CARCINOMA
     Dosage: 10 MG, QD
     Route: 048
     Dates: start: 20160903

REACTIONS (2)
  - Angiomyolipoma [Unknown]
  - Tuberous sclerosis [Unknown]

NARRATIVE: CASE EVENT DATE: 20170311
